FAERS Safety Report 8246190-4 (Version None)
Quarter: 2012Q1

REPORT INFORMATION
  Report Type: 
  Country: None (occurrence: None)
  Receive Date: 20120330
  Receipt Date: 20120328
  Transmission Date: 20120608
  Serious: Yes (Hospitalization, Other)
  Sender: FDA-Public Use
  Company Number: PHFR2011GB006326

PATIENT
  Sex: Female

DRUGS (11)
  1. SIMVASTATIN [Concomitant]
     Dosage: 20 MG, DAILY
     Route: 048
  2. FLUTICASONE PROPIONATE/SALMETEROL [Concomitant]
     Dosage: 500 UG, DAILY
  3. CLOZARIL [Suspect]
     Indication: SCHIZOPHRENIA
     Dosage: 600 MG, DAILY
     Route: 048
     Dates: start: 20070903
  4. VENLAFAXINE [Concomitant]
     Dosage: 300 MG, DAILY
     Route: 048
  5. ASPIRIN [Concomitant]
     Dosage: 75 MG, DAILY
     Route: 048
  6. CLOZARIL [Suspect]
     Dosage: 300 MG
     Route: 048
  7. VALPROIC ACID [Concomitant]
     Dosage: 2.5 MG, DAILY
     Route: 048
  8. PROCYCLIDINE HYDROCHLORIDE 2MG TAB [Concomitant]
     Dosage: 10 MG, DAILY
  9. TEMAZEPAM [Concomitant]
     Dosage: 20 MG, DAILY
     Route: 048
  10. ALBUTEROL [Concomitant]
     Dosage: 20 MG, DAILY
  11. FOLIC ACID [Concomitant]
     Dosage: 5 MG, UNK
     Route: 048

REACTIONS (12)
  - SEDATION [None]
  - WHITE BLOOD CELL COUNT DECREASED [None]
  - OXYGEN SATURATION DECREASED [None]
  - MENTAL IMPAIRMENT [None]
  - NEUTROPHIL COUNT DECREASED [None]
  - THROMBOCYTOPENIA [None]
  - LOWER RESPIRATORY TRACT INFECTION [None]
  - SOMNOLENCE [None]
  - DYSPNOEA [None]
  - MALAISE [None]
  - HALLUCINATION, AUDITORY [None]
  - EOSINOPHIL COUNT DECREASED [None]
